FAERS Safety Report 4808505-6 (Version None)
Quarter: 2005Q4

REPORT INFORMATION
  Report Type: 
  Country: None (occurrence: None)
  Receive Date: 20051025
  Receipt Date: 20051018
  Transmission Date: 20060501
  Serious: Yes (Other)
  Sender: FDA-Public Use
  Company Number: 2005SE05928

PATIENT
  Age: 66 Year
  Sex: Female

DRUGS (9)
  1. BLOPRESS TABLETS 12 [Suspect]
     Indication: HYPERTENSION
     Route: 048
     Dates: start: 20040607, end: 20050823
  2. TENORMIN [Concomitant]
     Route: 048
  3. LASIX [Concomitant]
     Route: 065
  4. WARFARIN [Concomitant]
     Route: 048
  5. ALTAT [Concomitant]
     Route: 065
  6. VERAPAMIL [Concomitant]
     Route: 065
  7. EPADEL [Concomitant]
     Route: 048
  8. PARAMIDIN [Concomitant]
     Route: 048
  9. MERISLON [Concomitant]
     Route: 048

REACTIONS (1)
  - INTERSTITIAL LUNG DISEASE [None]
